FAERS Safety Report 8876273 (Version 1)
Quarter: 2012Q4

REPORT INFORMATION
  Report Type: 
  Country: DK (occurrence: DK)
  Receive Date: 20121031
  Receipt Date: 20121031
  Transmission Date: 20130627
  Serious: Yes (Hospitalization, Other)
  Sender: FDA-Public Use
  Company Number: SE-RANBAXY-2011R1-43811

PATIENT
  Age: 65 Year
  Sex: Male
  Weight: 113 kg

DRUGS (4)
  1. FUROSEMIDE [Suspect]
     Indication: DIURETIC THERAPY
     Dosage: UNK
     Route: 065
  2. SPIRONOLACTONE [Suspect]
     Indication: DIURETIC THERAPY
     Dosage: UNK
     Route: 065
  3. BENDROFLUMETHIAZIDE [Suspect]
     Indication: DIURETIC THERAPY
     Dosage: UNK
     Route: 065
  4. METOPROLOL [Concomitant]
     Indication: HYPERTENSION
     Dosage: UNK
     Route: 065

REACTIONS (1)
  - Renal failure acute [Recovered/Resolved]
